FAERS Safety Report 24766456 (Version 5)
Quarter: 2025Q2

REPORT INFORMATION
  Report Type: Spontaneous
  Country: US (occurrence: US)
  Receive Date: 20241223
  Receipt Date: 20250606
  Transmission Date: 20250716
  Serious: Yes (Other)
  Sender: PFIZER
  Company Number: US-PFIZER INC-202400328118

PATIENT
  Age: 77 Year
  Sex: Female

DRUGS (1)
  1. TUKYSA [Suspect]
     Active Substance: TUCATINIB
     Indication: Rectal cancer
     Dosage: TWO 150MG TABLETS ORALLY TWICE A DAY (EVERY 12 HOURS)
     Route: 048
     Dates: start: 202205

REACTIONS (10)
  - Metastases to bone [Unknown]
  - Foot operation [Unknown]
  - Lung opacity [Unknown]
  - Hypoaesthesia [Recovering/Resolving]
  - Thyroid mass [Unknown]
  - Diarrhoea [Unknown]
  - Stoma site haemorrhage [Unknown]
  - Diverticulum intestinal [Unknown]
  - Rhinorrhoea [Unknown]
  - Off label use [Unknown]

NARRATIVE: CASE EVENT DATE: 20220101
